FAERS Safety Report 16359579 (Version 4)
Quarter: 2019Q3

REPORT INFORMATION
  Report Type: Spontaneous
  Country: JP (occurrence: JP)
  Receive Date: 20190528
  Receipt Date: 20190706
  Transmission Date: 20191004
  Serious: Yes (Hospitalization)
  Sender: FDA-Public Use
  Company Number: JP-AMGEN-JPNSP2019082294

PATIENT
  Age: 56 Year
  Sex: Male
  Weight: 70 kg

DRUGS (13)
  1. JEVTANA [Concomitant]
     Active Substance: CABAZITAXEL
     Indication: PROSTATE CANCER
     Dosage: 45 MILLIGRAM, QD
     Route: 042
     Dates: start: 20180208
  2. HARNAL [Concomitant]
     Active Substance: TAMSULOSIN HYDROCHLORIDE
     Dosage: 0.2 MILLIGRAM, QD
     Route: 048
     Dates: start: 20150410
  3. DEXART [Concomitant]
     Active Substance: DEXAMETHASONE SODIUM PHOSPHATE
     Indication: CHEMOTHERAPY
     Dosage: 6.6 MILLIGRAM, QD
     Route: 042
     Dates: start: 20150410
  4. PREDONINE [Concomitant]
     Active Substance: PREDNISOLONE
     Dosage: 7.5 MILLIGRAM, QD
     Route: 048
     Dates: start: 20160826
  5. XOFIGO [Concomitant]
     Active Substance: RADIUM RA-223 DICHLORIDE
     Dosage: UNK
     Route: 065
     Dates: start: 20170705, end: 20171122
  6. DENOTAS [Concomitant]
     Active Substance: CALCIUM CARBONATE\CHOLECALCIFEROL\MAGNESIUM CARBONATE
     Dosage: UNK UNK, QD
     Route: 048
     Dates: start: 20171025
  7. GONAX [Concomitant]
     Active Substance: DEGARELIX
     Indication: PROSTATE CANCER
     Dosage: 80 MILLIGRAM, QD
     Route: 058
     Dates: start: 20150410
  8. POLARAMINE [Concomitant]
     Active Substance: DEXCHLORPHENIRAMINE MALEATE
     Dosage: 5 MILLIGRAM, QD
     Route: 042
     Dates: start: 20150410
  9. GASTER [Concomitant]
     Active Substance: FAMOTIDINE
     Dosage: 20 MILLIGRAM, QD
     Route: 042
     Dates: start: 20150410
  10. BETANIS [Concomitant]
     Active Substance: MIRABEGRON
     Dosage: 50 MILLIGRAM, QD
     Route: 048
     Dates: start: 20181212
  11. TRAMAL [Concomitant]
     Active Substance: TRAMADOL
     Dosage: 75 MILLIGRAM, QID
     Route: 048
     Dates: start: 20170109
  12. RANMARK [Suspect]
     Active Substance: DENOSUMAB
     Indication: METASTASES TO BONE
     Dosage: 120 MILLIGRAM
     Route: 058
     Dates: start: 20171025, end: 20190417
  13. G LASTA [Concomitant]
     Active Substance: PEGFILGRASTIM
     Dosage: 3.6 MILLIGRAM, QD
     Route: 058
     Dates: start: 20150411

REACTIONS (2)
  - Atypical femur fracture [Unknown]
  - Atypical femur fracture [Recovered/Resolved]

NARRATIVE: CASE EVENT DATE: 20180916
